FAERS Safety Report 7868220-1 (Version None)
Quarter: 2011Q4

REPORT INFORMATION
  Report Type: 
  Country: None (occurrence: None)
  Receive Date: 20111028
  Receipt Date: 20111019
  Transmission Date: 20120403
  Serious: Yes (Other)
  Sender: FDA-Public Use
  Company Number: US-MERCK-1108USA01571

PATIENT
  Age: 74 Year
  Sex: Male

DRUGS (2)
  1. FOSAMAX [Suspect]
     Indication: OSTEITIS DEFORMANS
     Route: 048
     Dates: start: 19950101, end: 20110216
  2. FOSAMAX [Suspect]
     Route: 048

REACTIONS (10)
  - BLADDER CANCER [None]
  - HYPERTENSION [None]
  - BLOOD CHOLESTEROL INCREASED [None]
  - ORAL TORUS [None]
  - CARDIAC DISORDER [None]
  - DENTAL CARIES [None]
  - TOOTH FRACTURE [None]
  - OSTEONECROSIS OF JAW [None]
  - GINGIVAL BLEEDING [None]
  - GASTROOESOPHAGEAL REFLUX DISEASE [None]
